FAERS Safety Report 8283463-3 (Version None)
Quarter: 2012Q2

REPORT INFORMATION
  Report Type: 
  Country: None (occurrence: None)
  Receive Date: 20120413
  Receipt Date: 20120404
  Transmission Date: 20120825
  Serious: Yes (Hospitalization, Other)
  Sender: FDA-Public Use
  Company Number: US-ASTRAZENECA-2011SE54480

PATIENT
  Age: 54 Year
  Sex: Female
  Weight: 59 kg

DRUGS (11)
  1. SEROQUEL [Suspect]
     Route: 048
  2. SEROQUEL [Suspect]
     Indication: SCHIZOPHRENIA
     Route: 048
     Dates: start: 20020101
  3. SEROQUEL [Suspect]
     Indication: TRANSIENT ISCHAEMIC ATTACK
     Route: 048
     Dates: start: 20020101
  4. SEROQUEL [Suspect]
     Route: 048
  5. SEROQUEL [Suspect]
     Route: 048
  6. CIPROFLOXACIN HYDROCHLORIDE [Concomitant]
  7. SEROQUEL [Suspect]
     Indication: CONVULSION
     Route: 048
     Dates: start: 20020101
  8. SEROQUEL [Suspect]
     Route: 048
  9. SEROQUEL [Suspect]
     Route: 048
  10. SEROQUEL [Suspect]
     Route: 048
  11. VALIUM [Concomitant]
     Route: 048

REACTIONS (19)
  - HYPOACUSIS [None]
  - HAEMATEMESIS [None]
  - DIARRHOEA [None]
  - OFF LABEL USE [None]
  - MYOCARDIAL INFARCTION [None]
  - CROHN'S DISEASE [None]
  - OEDEMA PERIPHERAL [None]
  - DEAFNESS UNILATERAL [None]
  - VISUAL ACUITY REDUCED [None]
  - AGITATION [None]
  - HEADACHE [None]
  - CERVIX CARCINOMA STAGE IV [None]
  - SWELLING [None]
  - SWELLING FACE [None]
  - DYSPNOEA [None]
  - CONVULSION [None]
  - STAPHYLOCOCCAL INFECTION [None]
  - MOUTH HAEMORRHAGE [None]
  - HALLUCINATION [None]
